FAERS Safety Report 14947695 (Version 6)
Quarter: 2019Q2

REPORT INFORMATION
  Report Type: Spontaneous
  Country: US (occurrence: US)
  Receive Date: 20180529
  Receipt Date: 20190606
  Transmission Date: 20190711
  Serious: Yes (Hospitalization, Other)
  Sender: FDA-Public Use
  Company Number: US-VIFOR (INTERNATIONAL) INC.-VIT-2018-04938

PATIENT
  Age: 81 Year
  Sex: Female
  Weight: 66.74 kg

DRUGS (20)
  1. NORTRIPTYLINE HYDROCHLORIDE. [Concomitant]
     Active Substance: NORTRIPTYLINE HYDROCHLORIDE
  2. LISINOPRIL. [Concomitant]
     Active Substance: LISINOPRIL
  3. LIPITOR [Concomitant]
     Active Substance: ATORVASTATIN CALCIUM
  4. IRON [Concomitant]
     Active Substance: IRON
  5. HYDROCHLOROTHIAZIDE. [Concomitant]
     Active Substance: HYDROCHLOROTHIAZIDE
  6. MULTIVITAMINS [Concomitant]
     Active Substance: VITAMINS
  7. AMARYL [Concomitant]
     Active Substance: GLIMEPIRIDE
  8. CITALOPRAM HYDROBROMIDE. [Concomitant]
     Active Substance: CITALOPRAM HYDROBROMIDE
  9. SUCRALFATE. [Concomitant]
     Active Substance: SUCRALFATE
  10. CLONAZEPAM. [Concomitant]
     Active Substance: CLONAZEPAM
  11. NEXIUM [Concomitant]
     Active Substance: ESOMEPRAZOLE MAGNESIUM
  12. METOPROLOL TARTRATE. [Concomitant]
     Active Substance: METOPROLOL TARTRATE
  13. FERROUS GLUCONATE [Concomitant]
     Active Substance: FERROUS GLUCONATE
  14. ASPIR LOW [Concomitant]
     Active Substance: ASPIRIN
  15. ACETAMINOPHEN. [Concomitant]
     Active Substance: ACETAMINOPHEN
  16. NORVASC [Concomitant]
     Active Substance: AMLODIPINE BESYLATE
  17. ACTOS [Concomitant]
     Active Substance: PIOGLITAZONE HYDROCHLORIDE
  18. VELTASSA [Suspect]
     Active Substance: PATIROMER
     Indication: HYPERKALAEMIA
     Route: 048
     Dates: start: 20160802
  19. ZOCOR [Concomitant]
     Active Substance: SIMVASTATIN
  20. CARAFATE [Concomitant]
     Active Substance: SUCRALFATE

REACTIONS (18)
  - Oropharyngeal pain [Not Recovered/Not Resolved]
  - Cough [Recovered/Resolved]
  - Gastrooesophageal reflux disease [Not Recovered/Not Resolved]
  - Glossodynia [Not Recovered/Not Resolved]
  - Buccal mucosal roughening [Unknown]
  - Swollen tongue [Unknown]
  - Blood glucose increased [Unknown]
  - Dysphagia [Not Recovered/Not Resolved]
  - Upper-airway cough syndrome [Not Recovered/Not Resolved]
  - Heart rate irregular [Recovered/Resolved]
  - Palpitations [Recovered/Resolved]
  - Influenza [Recovered/Resolved]
  - Blood pressure abnormal [Unknown]
  - Hernia [Not Recovered/Not Resolved]
  - Cardiac flutter [Recovered/Resolved]
  - Blood potassium increased [Recovered/Resolved]
  - Tongue disorder [Not Recovered/Not Resolved]
  - Productive cough [Unknown]

NARRATIVE: CASE EVENT DATE: 20170101
